FAERS Safety Report 9244319 (Version 1)
Quarter: 2013Q1

REPORT INFORMATION
  Report Type: Spontaneous
  Country: US (occurrence: None)
  Receive Date: 20121123
  Receipt Date: 20121123
  Transmission Date: 20140127
  Serious: No
  Sender: FDA-Public Use
  Company Number: 359360

PATIENT
  Sex: 0

DRUGS (2)
  1. VICTOZA (LIRAGLUTIDE) SOLUTION FOR INJECTION, 6MG/ML [Suspect]
     Indication: DIABETES MELLITUS
     Route: 058
  2. LEVEMIR (INSULIN DETEMIR) SOLUTION FOR INJECTION, .002 MOL/L [Suspect]

REACTIONS (1)
  - Diarrhoea [None]
